FAERS Safety Report 15234885 (Version 2)
Quarter: 2019Q3

REPORT INFORMATION
  Report Type: Spontaneous
  Country: US (occurrence: US)
  Receive Date: 20180803
  Receipt Date: 20190805
  Transmission Date: 20191004
  Serious: Yes (Other)
  Sender: FDA-Public Use
  Company Number: US-ACCORD-064999

PATIENT
  Age: 49 Year
  Sex: Female

DRUGS (16)
  1. PARAPLATIN [Suspect]
     Active Substance: CARBOPLATIN
     Indication: BREAST CANCER
  2. AMBIEN [Concomitant]
     Active Substance: ZOLPIDEM TARTRATE
  3. NEULASTA [Concomitant]
     Active Substance: PEGFILGRASTIM
  4. LEXAPRO [Concomitant]
     Active Substance: ESCITALOPRAM OXALATE
  5. HERCEPTIN [Suspect]
     Active Substance: TRASTUZUMAB
     Indication: BREAST CANCER
  6. DOCETAXEL ACCORD [Suspect]
     Active Substance: DOCETAXEL
     Indication: BREAST CANCER
     Dosage: 110 MG AT EVERY 3 WEEKS
     Dates: start: 20141121, end: 20150514
  7. ATIVAN [Concomitant]
     Active Substance: LORAZEPAM
  8. NOVOLOG [Concomitant]
     Active Substance: INSULIN ASPART
  9. CLARITIN [Concomitant]
     Active Substance: LORATADINE
  10. IMODIUM A-D [Concomitant]
     Active Substance: LOPERAMIDE HYDROCHLORIDE
  11. OXYCODONE HYDROCHLORIDE/PARACETAMOL [Concomitant]
  12. PRILOSEC [Concomitant]
     Active Substance: OMEPRAZOLE MAGNESIUM
  13. NEURONTIN [Concomitant]
     Active Substance: GABAPENTIN
  14. HUMULIN 70/30 [Concomitant]
     Active Substance: INSULIN HUMAN
     Dates: start: 1991
  15. SENNA ALEXANDRINA [Concomitant]
     Active Substance: SENNA LEAF
  16. ZOFRAN [Concomitant]
     Active Substance: ONDANSETRON HYDROCHLORIDE

REACTIONS (1)
  - Alopecia [Not Recovered/Not Resolved]

NARRATIVE: CASE EVENT DATE: 201511
